FAERS Safety Report 10995014 (Version 1)
Quarter: 2015Q2

REPORT INFORMATION
  Report Type: Spontaneous
  Country: US (occurrence: US)
  Receive Date: 20150407
  Receipt Date: 20150407
  Transmission Date: 20150821
  Serious: Yes (Congenital Anomaly, Other)
  Sender: FDA-Public Use
  Company Number: US-GLAXOSMITHKLINE-US2015GSK045490

PATIENT
  Age: 0 Year
  Sex: Male

DRUGS (1)
  1. ZOFRAN [Suspect]
     Active Substance: ONDANSETRON HYDROCHLORIDE
     Indication: NAUSEA
     Dosage: UNK
     Route: 064
     Dates: start: 200601

REACTIONS (11)
  - Polydactyly [Not Recovered/Not Resolved]
  - Seizure [Not Recovered/Not Resolved]
  - Developmental delay [Not Recovered/Not Resolved]
  - Foetal exposure during pregnancy [Unknown]
  - High arched palate [Not Recovered/Not Resolved]
  - Glaucoma [Not Recovered/Not Resolved]
  - Speech disorder [Not Recovered/Not Resolved]
  - Adverse event [Not Recovered/Not Resolved]
  - Cytogenetic abnormality [Not Recovered/Not Resolved]
  - Kidney enlargement [Not Recovered/Not Resolved]
  - Ureteral disorder [Not Recovered/Not Resolved]

NARRATIVE: CASE EVENT DATE: 2006
